FAERS Safety Report 11052807 (Version 3)
Quarter: 2015Q3

REPORT INFORMATION
  Report Type: Spontaneous
  Country: US (occurrence: US)
  Receive Date: 20150421
  Receipt Date: 20150807
  Transmission Date: 20151125
  Serious: No
  Sender: FDA-Public Use
  Company Number: US-JNJFOC-20150203276

PATIENT
  Age: 29 Year
  Sex: Male

DRUGS (1)
  1. RISPERDAL CONSTA [Suspect]
     Active Substance: RISPERIDONE
     Indication: ANGER
     Route: 030
     Dates: start: 2014, end: 2014

REACTIONS (5)
  - Erectile dysfunction [Unknown]
  - Feeling abnormal [Unknown]
  - Loss of libido [Not Recovered/Not Resolved]
  - Hypokinesia [Not Recovered/Not Resolved]
  - Decreased interest [Not Recovered/Not Resolved]

NARRATIVE: CASE EVENT DATE: 201405
